FAERS Safety Report 8932533 (Version 1)
Quarter: 2012Q4

REPORT INFORMATION
  Report Type: Spontaneous
  Country: DE (occurrence: None)
  Receive Date: 20121120
  Receipt Date: 20121120
  Transmission Date: 20130627
  Serious: Yes (Other)
  Sender: FDA-Public Use
  Company Number: GER/GER/12/0026619

PATIENT
  Age: 78 Year
  Sex: Male
  Weight: 60 kg

DRUGS (7)
  1. SIMVABETA [Suspect]
     Dosage: Oral
     Route: 048
  2. SIMVABETA [Suspect]
     Dosage: 80 mg,  1 in 1 Total,  Oral
     Route: 048
     Dates: start: 20121109
  3. DYAZIDE [Suspect]
     Indication: DRUG USE FOR UNKNOWN INDICATION
     Dosage: 50 mg,  1 in 1 Total,  Oral
     Route: 048
     Dates: start: 20121109
  4. OMEPRAZOL [Suspect]
     Indication: DRUG USE FOR UNKNOWN INDICATION
     Dosage: 80 mg,  1 in 1 Total,  Oral
     Route: 048
     Dates: start: 20121109
  5. ASS [Suspect]
     Indication: DRUG USE FOR UNKNOWN INDICATION
     Dosage: 200 mg,  1 in 1 Total,  Oral
     Route: 048
     Dates: start: 20121109
  6. METFORMIN [Suspect]
     Indication: DRUG USE FOR UNKNOWN INDICATION
     Dosage: 1700  mg,  1 in 1 Total,  Oral
     Route: 048
     Dates: start: 20121109
  7. NIFEDIPINE [Suspect]
     Indication: DRUG USE FOR UNKNOWN INDICATION
     Dosage: 80 mg,  1 in 1 Total,  Oral
     Route: 048
     Dates: start: 20121109

REACTIONS (2)
  - Arrhythmia [None]
  - Incorrect dose administered [None]
